FAERS Safety Report 9137623 (Version 1)
Quarter: 2013Q1

REPORT INFORMATION
  Report Type: Spontaneous
  Country: US (occurrence: US)
  Receive Date: 20130304
  Receipt Date: 20130304
  Transmission Date: 20140127
  Serious: Yes (Hospitalization)
  Sender: FDA-Public Use
  Company Number: US-PFIZER INC-2013069577

PATIENT
  Age: 18 Month
  Sex: Male
  Weight: 9.98 kg

DRUGS (1)
  1. DILANTIN-125 [Suspect]
     Dosage: 1 TEASPOONFUL EVERY 3 HOURS AROUND

REACTIONS (5)
  - Medication error [Recovered/Resolved]
  - Toxicity to various agents [Recovered/Resolved]
  - VIth nerve paralysis [Recovered/Resolved]
  - Nervous system disorder [Recovered/Resolved]
  - Brain stem syndrome [Recovered/Resolved]
